FAERS Safety Report 4977693-3 (Version None)
Quarter: 2006Q2

REPORT INFORMATION
  Report Type: 
  Country: None (occurrence: None)
  Receive Date: 20060420
  Receipt Date: 20051212
  Transmission Date: 20061013
  Serious: Yes (Hospitalization)
  Sender: FDA-Public Use
  Company Number: US-GLAXOSMITHKLINE-A0585530A

PATIENT
  Sex: Female

DRUGS (2)
  1. ESKALITH [Suspect]
     Indication: DRUG USE FOR UNKNOWN INDICATION
     Dosage: 450MG UNKNOWN
     Route: 048
  2. NO CONCURRENT MEDICATION [Concomitant]

REACTIONS (1)
  - LEUKOCYTOSIS [None]
